FAERS Safety Report 4780970-2 (Version None)
Quarter: 2005Q3

REPORT INFORMATION
  Report Type: 
  Country: None (occurrence: None)
  Receive Date: 20050926
  Receipt Date: 20050926
  Transmission Date: 20060218
  Serious: Yes (Death)
  Sender: FDA-Public Use
  Company Number: None

PATIENT
  Sex: Female
  Weight: 77.5651 kg

DRUGS (2)
  1. TEQUIN [Suspect]
     Indication: PNEUMONIA
     Dosage: 400 MG DAILY
     Dates: start: 20050908
  2. COUMADIN [Suspect]
     Indication: EMBOLISM
     Dosage: 2 MG SAT-SUN-TUES-TH  4 MG M-W-F
     Dates: start: 20050420, end: 20050918

REACTIONS (2)
  - CEREBRAL HAEMORRHAGE [None]
  - LOSS OF CONSCIOUSNESS [None]
